FAERS Safety Report 10963486 (Version 2)
Quarter: 2015Q1

REPORT INFORMATION
  Report Type: Spontaneous
  Country: US (occurrence: None)
  Receive Date: 20150226
  Receipt Date: 20150226
  Transmission Date: 20150721
  Serious: No
  Sender: FDA-Public Use
  Company Number: TPA2009A03104

PATIENT
  Age: 85 Year
  Sex: Female
  Weight: 66.5 kg

DRUGS (5)
  1. ARGYLIN (ANAGRELIDE) [Concomitant]
  2. RHYTHMOL (PROPAFENONE) [Concomitant]
  3. COLESTIPOL HCL (COLESTIPOL HYDROCHLORIDE) [Concomitant]
  4. ULORIC [Suspect]
     Active Substance: FEBUXOSTAT
     Indication: GOUT
     Dates: start: 20090922
  5. ATENOLOL. [Concomitant]
     Active Substance: ATENOLOL

REACTIONS (5)
  - Localised infection [None]
  - Faecal incontinence [None]
  - Foot deformity [None]
  - Oedema peripheral [None]
  - Gout [None]

NARRATIVE: CASE EVENT DATE: 20090922
